FAERS Safety Report 9786825 (Version 1)
Quarter: 2013Q4

REPORT INFORMATION
  Report Type: Spontaneous
  Country: US (occurrence: US)
  Receive Date: 20131227
  Receipt Date: 20131227
  Transmission Date: 20140711
  Serious: Yes (Life-Threatening, Hospitalization, Other)
  Sender: FDA-Public Use
  Company Number: US-ACTAVIS-2013-23331

PATIENT
  Age: 58 Year
  Sex: Female

DRUGS (7)
  1. TACROLIMUS (WATSON LABORATORIES) [Suspect]
     Indication: PROPHYLAXIS AGAINST GRAFT VERSUS HOST DISEASE
     Dosage: 1.4 MG, DAILY
     Route: 042
  2. TACROLIMUS (WATSON LABORATORIES) [Suspect]
     Dosage: 0.7 MG, DAILY
     Route: 042
  3. MYCOPHENOLATE [Concomitant]
     Indication: PROPHYLAXIS AGAINST GRAFT VERSUS HOST DISEASE
     Dosage: 2.25 G, DAILY
     Route: 065
  4. CYCLOSPORIN [Concomitant]
     Indication: PROPHYLAXIS AGAINST GRAFT VERSUS HOST DISEASE
     Dosage: 50 MG/M2 ON DAYS +3 AND +4
     Route: 065
  5. THIOTEPA [Concomitant]
     Indication: CHEMOTHERAPY
     Dosage: 10 MG/KG, UNKNOWN
     Route: 065
  6. MELPHALAN [Concomitant]
     Indication: CHEMOTHERAPY
     Dosage: 140 MG/M2, UNKNOWN
     Route: 065
  7. FLUDARABINE [Concomitant]
     Indication: CHEMOTHERAPY
     Dosage: 160 MG/M2, UNKNOWN
     Route: 065

REACTIONS (9)
  - Status epilepticus [Recovered/Resolved]
  - Renal failure acute [Unknown]
  - Hypotension [Unknown]
  - Locked-in syndrome [Recovered/Resolved]
  - Asthenia [Recovered/Resolved]
  - Apathy [Recovered/Resolved]
  - Social avoidant behaviour [Recovered/Resolved]
  - Disturbance in attention [Recovered/Resolved]
  - Somnolence [Recovered/Resolved]
